FAERS Safety Report 17913360 (Version 1)
Quarter: 2020Q2

REPORT INFORMATION
  Report Type: Spontaneous
  Country: US (occurrence: US)
  Receive Date: 20200618
  Receipt Date: 20200618
  Transmission Date: 20200714
  Serious: No
  Sender: FDA-Public Use
  Company Number: US-THERAPEUTICSMD-2020TMD01571

PATIENT
  Sex: Female
  Weight: 58.96 kg

DRUGS (3)
  1. IMVEXXY [Suspect]
     Active Substance: ESTRADIOL
     Indication: VULVOVAGINAL DRYNESS
     Dosage: 10 ?G, 2X/WEEK (MONDAY AND THURSDAY) BEFORE BED
     Route: 067
     Dates: start: 202001
  2. MEDIUM LIGHT CHAIN TRIGLYCERIDES [Concomitant]
  3. TRAMADOL. [Concomitant]
     Active Substance: TRAMADOL
     Dosage: 0.5 TABLETS, 2X/DAY

REACTIONS (5)
  - Blood cholesterol increased [Not Recovered/Not Resolved]
  - Off label use [Not Recovered/Not Resolved]
  - High density lipoprotein increased [Not Recovered/Not Resolved]
  - Low density lipoprotein increased [Not Recovered/Not Resolved]
  - Drug ineffective for unapproved indication [Recovered/Resolved]

NARRATIVE: CASE EVENT DATE: 2020
